FAERS Safety Report 6655040-9 (Version None)
Quarter: 2010Q1

REPORT INFORMATION
  Report Type: 
  Country: None (occurrence: None)
  Receive Date: 20100329
  Receipt Date: 20100313
  Transmission Date: 20100710
  Serious: Yes (Disabling, Other)
  Sender: FDA-Public Use
  Company Number: US-JNJFOC-20051201910

PATIENT
  Sex: Male
  Weight: 96.16 kg

DRUGS (9)
  1. LEVAQUIN [Suspect]
     Indication: DRUG USE FOR UNKNOWN INDICATION
  2. LEVAQUIN [Suspect]
  3. MAXAQUIN [Suspect]
     Indication: PROSTATIC DISORDER
  4. CIPROFLOXACIN [Suspect]
     Indication: DRUG USE FOR UNKNOWN INDICATION
  5. CIPROFLOXACIN [Suspect]
  6. CIPROFLOXACIN [Suspect]
  7. CIPROFLOXACIN [Suspect]
  8. TEQUIN [Suspect]
     Indication: DRUG USE FOR UNKNOWN INDICATION
  9. AVELOX [Suspect]
     Indication: DRUG USE FOR UNKNOWN INDICATION

REACTIONS (19)
  - AMNESIA [None]
  - ANXIETY [None]
  - ARTHRALGIA [None]
  - ATRIAL FIBRILLATION [None]
  - AZOOSPERMIA [None]
  - BACK PAIN [None]
  - BLOOD CREATININE INCREASED [None]
  - DEAFNESS [None]
  - ERECTILE DYSFUNCTION [None]
  - EYE PAIN [None]
  - INSOMNIA [None]
  - LIVER INJURY [None]
  - MUSCULOSKELETAL PAIN [None]
  - PAIN IN JAW [None]
  - RASH [None]
  - ROTATOR CUFF SYNDROME [None]
  - TENDON RUPTURE [None]
  - TINNITUS [None]
  - VISUAL ACUITY REDUCED [None]
